FAERS Safety Report 19693574 (Version 1)
Quarter: 2021Q3

REPORT INFORMATION
  Report Type: Spontaneous
  Country: JP (occurrence: JP)
  Receive Date: 20210813
  Receipt Date: 20210813
  Transmission Date: 20211014
  Serious: Yes (Other)
  Sender: FDA-Public Use
  Company Number: JP-ASPEN-GLO2021JP006540

PATIENT

DRUGS (5)
  1. XYLOCAINE [Suspect]
     Active Substance: LIDOCAINE HYDROCHLORIDE
     Indication: NERVE BLOCK
     Dosage: UNK
     Route: 065
  2. DEXAMETHASONE. [Suspect]
     Active Substance: DEXAMETHASONE
     Indication: PRODUCT USED FOR UNKNOWN INDICATION
     Dosage: UNK
     Route: 065
  3. KENACORT [Concomitant]
     Active Substance: TRIAMCINOLONE
     Indication: CARPAL TUNNEL SYNDROME
     Dosage: UNK
     Route: 065
  4. XYLOCAINE [Suspect]
     Active Substance: LIDOCAINE HYDROCHLORIDE
     Indication: CARPAL TUNNEL SYNDROME
  5. XYLOCAINE [Suspect]
     Active Substance: LIDOCAINE HYDROCHLORIDE
     Indication: VARICOSE VEIN

REACTIONS (2)
  - Altered state of consciousness [Unknown]
  - Vomiting [Unknown]
